FAERS Safety Report 9796089 (Version 3)
Quarter: 2016Q1

REPORT INFORMATION
  Report Type: Spontaneous
  Country: US (occurrence: US)
  Receive Date: 20140103
  Receipt Date: 20160314
  Transmission Date: 20160526
  Serious: No
  Sender: FDA-Public Use
  Company Number: US-PFIZER INC-2013374631

PATIENT
  Age: 62 Year
  Sex: Female

DRUGS (8)
  1. RELAFEN [Suspect]
     Active Substance: NABUMETONE
     Dosage: UNK
  2. DOLOBID [Suspect]
     Active Substance: DIFLUNISAL
     Dosage: UNK
  3. HEPARIN SODIUM. [Suspect]
     Active Substance: HEPARIN SODIUM
     Dosage: UNK
  4. CLINORIL [Suspect]
     Active Substance: SULINDAC
     Dosage: UNK
  5. CLOZARIL [Suspect]
     Active Substance: CLOZAPINE
     Dosage: UNK
  6. TRANDATE [Suspect]
     Active Substance: LABETALOL HYDROCHLORIDE
     Dosage: UNK
  7. LODINE [Suspect]
     Active Substance: ETODOLAC
     Dosage: UNK
  8. CLONIDINE. [Suspect]
     Active Substance: CLONIDINE
     Dosage: UNK

REACTIONS (1)
  - Drug hypersensitivity [Unknown]
